FAERS Safety Report 9227938 (Version 2)
Quarter: 2013Q2

REPORT INFORMATION
  Report Type: Spontaneous
  Country: GB (occurrence: GB)
  Receive Date: 20130412
  Receipt Date: 20130424
  Transmission Date: 20140414
  Serious: Yes (Hospitalization)
  Sender: FDA-Public Use
  Company Number: GB-009507513-1302GBR011386

PATIENT
  Age: 51 Year
  Sex: Male
  Weight: 70.8 kg

DRUGS (7)
  1. ISENTRESS [Suspect]
     Indication: ANTIRETROVIRAL THERAPY
     Dosage: 400 MG, BID
     Route: 048
     Dates: start: 20120918, end: 20130304
  2. DAPSONE [Concomitant]
     Indication: PROPHYLAXIS
     Dosage: 50 MG, UNK
  3. DARUNAVIR (+) RITONAVIR [Concomitant]
     Indication: ANTIRETROVIRAL THERAPY
     Dosage: 800/100 MG, BID
     Dates: start: 20120919
  4. EMTRICITABINE [Concomitant]
     Indication: ANTIRETROVIRAL THERAPY
     Dosage: 200 MG, QD
     Dates: start: 20130101, end: 20130312
  5. FOLIC ACID [Concomitant]
     Indication: PROPHYLAXIS
     Dosage: 15 MG, QD
  6. PYRIMETHAMINE [Concomitant]
     Indication: PROPHYLAXIS
     Dosage: 50 MG, QW
  7. TRUVADA [Concomitant]
     Dosage: UNK

REACTIONS (1)
  - Myalgia [Not Recovered/Not Resolved]
